FAERS Safety Report 8844308 (Version 2)
Quarter: 2012Q4

REPORT INFORMATION
  Report Type: Report from Study
  Country: CA (occurrence: CA)
  Receive Date: 20121017
  Receipt Date: 20121211
  Transmission Date: 20130627
  Serious: Yes (Disabling, Other)
  Sender: FDA-Public Use
  Company Number: CA-JNJFOC-20121006268

PATIENT
  Sex: Male
  Weight: 69 kg

DRUGS (6)
  1. REMICADE [Suspect]
     Indication: COLITIS ULCERATIVE
     Route: 042
     Dates: start: 20120629
  2. PENTASA [Concomitant]
     Route: 065
  3. URSODIOL [Concomitant]
     Route: 065
  4. RANITIDINE [Concomitant]
     Route: 065
  5. NORVASC [Concomitant]
     Route: 065
  6. PREDNISONE [Concomitant]
     Route: 065

REACTIONS (3)
  - Arthralgia [Unknown]
  - Cytomegalovirus infection [Recovered/Resolved]
  - Pulmonary mycosis [Recovered/Resolved]
